FAERS Safety Report 5765071-9 (Version None)
Quarter: 2008Q2

REPORT INFORMATION
  Report Type: 
  Country: None (occurrence: None)
  Receive Date: 20080611
  Receipt Date: 20080606
  Transmission Date: 20081010
  Serious: Yes (Life-Threatening)
  Sender: FDA-Public Use
  Company Number: JP-BRISTOL-MYERS SQUIBB COMPANY-14221147

PATIENT
  Age: 45 Year
  Sex: Female

DRUGS (1)
  1. TAXOL [Suspect]
     Indication: GASTRIC CANCER
     Dosage: TAXOL STARTED ON 12-OCT-2006
     Route: 041
     Dates: start: 20071220, end: 20071220

REACTIONS (1)
  - LYMPHOMA [None]
